FAERS Safety Report 5952151-8 (Version None)
Quarter: 2008Q4

REPORT INFORMATION
  Report Type: 
  Country: None (occurrence: None)
  Receive Date: 20081113
  Receipt Date: 20080715
  Transmission Date: 20090506
  Serious: No
  Sender: FDA-Public Use
  Company Number: A0737736A

PATIENT
  Age: 58 Year
  Sex: Male

DRUGS (6)
  1. COREG [Suspect]
     Indication: HYPERTENSION
     Dosage: 25MG SINGLE DOSE
     Route: 048
     Dates: start: 20080714
  2. COREG CR [Suspect]
     Indication: HYPERTENSION
     Dosage: 10MG PER DAY
     Route: 048
     Dates: start: 20050101
  3. LISINOPRIL [Concomitant]
  4. GLYBURIDE [Concomitant]
  5. GEMFIBROZIL [Concomitant]
  6. ZOCOR [Concomitant]

REACTIONS (1)
  - LETHARGY [None]
